FAERS Safety Report 7928469-6 (Version None)
Quarter: 2011Q4

REPORT INFORMATION
  Report Type: 
  Country: None (occurrence: None)
  Receive Date: 20111118
  Receipt Date: 20111117
  Transmission Date: 20120403
  Serious: Yes (Other)
  Sender: FDA-Public Use
  Company Number: PHHY2011CN94486

PATIENT
  Age: 6 Year

DRUGS (6)
  1. TRILEPTAL [Suspect]
     Indication: EPILEPSY
     Dosage: 75 MG, DAILY
     Dates: start: 20110910
  2. TOPAMAX [Concomitant]
     Dosage: 25 MG, DAILY
  3. TRILEPTAL [Suspect]
     Dosage: 150 MG, DAILY
  4. TRILEPTAL [Suspect]
     Dosage: 450 MG, DAILY
  5. TOPAMAX [Concomitant]
     Dosage: 50 MG, DAILY
  6. TRILEPTAL [Suspect]
     Dosage: 300 MG, DAILY

REACTIONS (2)
  - AMAUROSIS FUGAX [None]
  - VISUAL IMPAIRMENT [None]
